FAERS Safety Report 18537749 (Version 1)
Quarter: 2020Q4

REPORT INFORMATION
  Report Type: Spontaneous
  Country: US (occurrence: US)
  Receive Date: 20201124
  Receipt Date: 20201124
  Transmission Date: 20210114
  Serious: No
  Sender: FDA-Public Use
  Company Number: US-ALVOGEN-2019-ALVOGEN-099278

PATIENT
  Age: 64 Year
  Sex: Female

DRUGS (2)
  1. ZESTRIL [Suspect]
     Active Substance: LISINOPRIL
     Indication: HYPERTENSION
     Route: 048
  2. CRESTOR [Concomitant]
     Active Substance: ROSUVASTATIN CALCIUM
     Indication: BLOOD CHOLESTEROL INCREASED

REACTIONS (7)
  - Unevaluable event [Not Recovered/Not Resolved]
  - Palpitations [Not Recovered/Not Resolved]
  - Blood pressure decreased [Not Recovered/Not Resolved]
  - Gingival bleeding [Recovered/Resolved]
  - Drug ineffective [Unknown]
  - Product substitution issue [Unknown]
  - Negativism [Not Recovered/Not Resolved]

NARRATIVE: CASE EVENT DATE: 201701
